FAERS Safety Report 21560189 (Version 1)
Quarter: 2022Q4

REPORT INFORMATION
  Report Type: Spontaneous
  Country: GB (occurrence: GB)
  Receive Date: 20221107
  Receipt Date: 20221107
  Transmission Date: 20230112
  Serious: Yes (Other)
  Sender: FDA-Public Use
  Company Number: GB-ADVANZ PHARMA-202210007236

PATIENT
  Sex: Female

DRUGS (1)
  1. OCALIVA [Suspect]
     Active Substance: OBETICHOLIC ACID
     Dosage: UNK, QD (OCALIVA IN APRIL; TAB 30 )

REACTIONS (4)
  - Polymyalgia rheumatica [Unknown]
  - Pruritus [Unknown]
  - Constipation [Unknown]
  - Rash erythematous [Unknown]
